FAERS Safety Report 5235147-3 (Version None)
Quarter: 2007Q1

REPORT INFORMATION
  Report Type: 
  Country: None (occurrence: None)
  Receive Date: 20070207
  Receipt Date: 20070129
  Transmission Date: 20070707
  Serious: Yes (Hospitalization)
  Sender: FDA-Public Use
  Company Number: MEDI-0005363

PATIENT
  Age: 50 Year
  Sex: Male

DRUGS (4)
  1. ETHYOL [Suspect]
     Indication: TONGUE NEOPLASM MALIGNANT STAGE UNSPECIFIED
     Dosage: 1 IN 1 D, INTRAVENOUS (NOT OTHERWISE SPECIFIED)
     Route: 042
     Dates: start: 20061201, end: 20061218
  2. CISPLATIN [Concomitant]
  3. RADIATION THERAPY [Concomitant]
  4. CHEMOTHERAPY [Concomitant]

REACTIONS (1)
  - ANAPHYLACTIC REACTION [None]
